FAERS Safety Report 6290611-3 (Version None)
Quarter: 2009Q3

REPORT INFORMATION
  Report Type: 
  Country: None (occurrence: None)
  Receive Date: 20090728
  Receipt Date: 20090728
  Transmission Date: 20100115
  Serious: Yes (Hospitalization)
  Sender: FDA-Public Use
  Company Number: None

PATIENT
  Age: 41 Year
  Sex: Female
  Weight: 72.5755 kg

DRUGS (1)
  1. LOESTRIN 1.5/30 [Suspect]
     Indication: HORMONE REPLACEMENT THERAPY
     Dosage: 1 DAILY
     Dates: start: 20090711, end: 20090712

REACTIONS (1)
  - UNEVALUABLE EVENT [None]
